FAERS Safety Report 18549387 (Version 2)
Quarter: 2020Q4

REPORT INFORMATION
  Report Type: Spontaneous
  Country: US (occurrence: US)
  Receive Date: 20201126
  Receipt Date: 20201212
  Transmission Date: 20210114
  Serious: No
  Sender: FDA-Public Use
  Company Number: NVSC2020US307512

PATIENT
  Sex: Female

DRUGS (3)
  1. HYDROCORTISONE. [Suspect]
     Active Substance: HYDROCORTISONE
     Indication: RASH
     Dosage: UNK (6 OTHER TIMES)
     Route: 065
     Dates: start: 20201111
  2. VICODIN [Concomitant]
     Active Substance: ACETAMINOPHEN\HYDROCODONE BITARTRATE
     Indication: MENISCUS REMOVAL
     Dosage: UNK
     Route: 065
  3. HYDROCORTISONE. [Suspect]
     Active Substance: HYDROCORTISONE
     Dosage: UNK
     Route: 065
     Dates: start: 20201116

REACTIONS (5)
  - Blister [Not Recovered/Not Resolved]
  - Injury [Unknown]
  - Rash [Unknown]
  - Adverse reaction [Unknown]
  - Burning sensation [Unknown]
